FAERS Safety Report 21131618 (Version 1)
Quarter: 2022Q3

REPORT INFORMATION
  Report Type: Spontaneous
  Country: CA (occurrence: CA)
  Receive Date: 20220726
  Receipt Date: 20220726
  Transmission Date: 20221027
  Serious: Yes (Hospitalization, Other)
  Sender: FDA-Public Use
  Company Number: CA-PFIZER INC-202200999993

PATIENT
  Age: 12 Year
  Sex: Female
  Weight: 60 kg

DRUGS (6)
  1. PHENYTOIN [Suspect]
     Active Substance: PHENYTOIN
     Indication: Epilepsy
     Dosage: 1000 MG
     Route: 042
  2. AMOXICILLIN\CLAVULANATE POTASSIUM [Concomitant]
     Active Substance: AMOXICILLIN\CLAVULANATE POTASSIUM
  3. LACOSAMIDE [Concomitant]
     Active Substance: LACOSAMIDE
  4. LEVETIRACETAM [Concomitant]
     Active Substance: LEVETIRACETAM
     Route: 065
  5. LORAZEPAM [Concomitant]
     Active Substance: LORAZEPAM
     Route: 065
  6. MIDAZOLAM [Concomitant]
     Active Substance: MIDAZOLAM
     Route: 030

REACTIONS (10)
  - Acute hepatic failure [Recovered/Resolved]
  - Altered state of consciousness [Recovered/Resolved]
  - Brain oedema [Recovered/Resolved]
  - Cortical laminar necrosis [Recovered/Resolved]
  - Hepatic cytolysis [Recovered/Resolved]
  - Hepatic encephalopathy [Recovered/Resolved]
  - Neurological symptom [Recovered/Resolved]
  - SARS-CoV-2 test positive [Recovered/Resolved]
  - Status epilepticus [Recovered/Resolved]
  - Off label use [Unknown]
